FAERS Safety Report 23527004 (Version 2)
Quarter: 2024Q1

REPORT INFORMATION
  Report Type: Spontaneous
  Country: FR (occurrence: FR)
  Receive Date: 20240215
  Receipt Date: 20240313
  Transmission Date: 20240410
  Serious: Yes (Hospitalization)
  Sender: FDA-Public Use
  Company Number: None

PATIENT
  Age: 70 Year
  Sex: Female
  Weight: 63 kg

DRUGS (5)
  1. CYCLOPHOSPHAMIDE [Suspect]
     Active Substance: CYCLOPHOSPHAMIDE
     Indication: B-cell lymphoma
     Dosage: 1000 MG, ONCE TOTAL
     Route: 042
     Dates: start: 20231204, end: 20231204
  2. DOXORUBICIN [Suspect]
     Active Substance: DOXORUBICIN
     Indication: B-cell lymphoma
     Dosage: 67 MG, ONCE TOTAL
     Route: 042
     Dates: start: 20231204, end: 20231204
  3. PREDNISONE [Interacting]
     Active Substance: PREDNISONE
     Indication: B-cell lymphoma
     Dosage: 60 MG, ONCE A DAY
     Route: 048
     Dates: start: 20231204, end: 20231207
  4. VINCRISTINE SULFATE [Suspect]
     Active Substance: VINCRISTINE SULFATE
     Indication: B-cell lymphoma
     Dosage: 18 MG, ONCE TOTAL
     Route: 042
     Dates: start: 20231204, end: 20231204
  5. MABTHERA [Interacting]
     Active Substance: RITUXIMAB
     Indication: B-cell lymphoma
     Dosage: 1 DOSAGE FORM, ONCE TOTAL, SOLUTION FOR INJECTION SUBCUTANEOUS (MAMMAL/HAMSTER/CHO CELLS)
     Route: 058
     Dates: start: 20231204, end: 20231204

REACTIONS (2)
  - Aggression [Recovered/Resolved]
  - Confusional state [Recovered/Resolved]

NARRATIVE: CASE EVENT DATE: 20240206
